FAERS Safety Report 7583282-7 (Version None)
Quarter: 2011Q2

REPORT INFORMATION
  Report Type: 
  Country: None (occurrence: None)
  Receive Date: 20110623
  Receipt Date: 20110607
  Transmission Date: 20111010
  Serious: Yes (Hospitalization)
  Sender: FDA-Public Use
  Company Number: PNIS20110001

PATIENT
  Age: 66 Year
  Sex: Female

DRUGS (4)
  1. ATENOLOL [Concomitant]
  2. PREDNISOLONE [Suspect]
     Indication: POLYMYALGIA RHEUMATICA
     Dosage: 15 MG /15 ML, 1 IN 1 D, ORAL
     Route: 048
     Dates: start: 20070903
  3. CANDESARTAN CILEXETIL [Concomitant]
  4. GLICLAZIDE(GLICLAZIDE) [Concomitant]

REACTIONS (26)
  - BLOOD UREA INCREASED [None]
  - BRAIN NATRIURETIC PEPTIDE INCREASED [None]
  - VENTRICULAR HYPERKINESIA [None]
  - ALDOLASE INCREASED [None]
  - HYPERHIDROSIS [None]
  - PALLOR [None]
  - LEFT VENTRICULAR HYPERTROPHY [None]
  - CARDIOMEGALY [None]
  - WHITE BLOOD CELL COUNT INCREASED [None]
  - BLOOD CREATININE INCREASED [None]
  - PHAEOCHROMOCYTOMA CRISIS [None]
  - MULTI-ORGAN FAILURE [None]
  - HEADACHE [None]
  - RHABDOMYOLYSIS [None]
  - CHILLS [None]
  - BODY TEMPERATURE DECREASED [None]
  - BLOOD PRESSURE INCREASED [None]
  - SINUS TACHYCARDIA [None]
  - HAEMODYNAMIC INSTABILITY [None]
  - PALPITATIONS [None]
  - VOMITING [None]
  - NEUTROPHIL PERCENTAGE INCREASED [None]
  - RED BLOOD CELL SEDIMENTATION RATE INCREASED [None]
  - C-REACTIVE PROTEIN INCREASED [None]
  - NAUSEA [None]
  - PERIPHERAL COLDNESS [None]
